FAERS Safety Report 5217006-5 (Version None)
Quarter: 2007Q1

REPORT INFORMATION
  Report Type: 
  Country: None (occurrence: None)
  Receive Date: 20070124
  Receipt Date: 20070116
  Transmission Date: 20070707
  Serious: Yes (Hospitalization)
  Sender: FDA-Public Use
  Company Number: US-JNJFOC-20070104190

PATIENT
  Sex: Female
  Weight: 67.13 kg

DRUGS (34)
  1. INFLIXIMAB [Suspect]
  2. INFLIXIMAB [Suspect]
  3. INFLIXIMAB [Suspect]
  4. INFLIXIMAB [Suspect]
  5. INFLIXIMAB [Suspect]
  6. INFLIXIMAB [Suspect]
  7. INFLIXIMAB [Suspect]
  8. INFLIXIMAB [Suspect]
  9. INFLIXIMAB [Suspect]
  10. INFLIXIMAB [Suspect]
  11. INFLIXIMAB [Suspect]
  12. INFLIXIMAB [Suspect]
  13. INFLIXIMAB [Suspect]
  14. INFLIXIMAB [Suspect]
  15. INFLIXIMAB [Suspect]
  16. INFLIXIMAB [Suspect]
  17. INFLIXIMAB [Suspect]
  18. INFLIXIMAB [Suspect]
  19. INFLIXIMAB [Suspect]
  20. INFLIXIMAB [Suspect]
  21. INFLIXIMAB [Suspect]
  22. INFLIXIMAB [Suspect]
  23. INFLIXIMAB [Suspect]
  24. INFLIXIMAB [Suspect]
  25. INFLIXIMAB [Suspect]
  26. INFLIXIMAB [Suspect]
  27. INFLIXIMAB [Suspect]
  28. INFLIXIMAB [Suspect]
     Indication: CROHN'S DISEASE
  29. ACETAMINOPHEN [Concomitant]
     Indication: PREMEDICATION
  30. ANTIHISTAMINES [Concomitant]
     Indication: PREMEDICATION
  31. STEROIDS [Concomitant]
     Indication: PREMEDICATION
  32. AZATHIOPRINE [Concomitant]
  33. TACROLIMUS [Concomitant]
  34. PREDNISONE TAB [Concomitant]

REACTIONS (1)
  - ADENOCARCINOMA [None]
